FAERS Safety Report 23772898 (Version 1)
Quarter: 2024Q2

REPORT INFORMATION
  Report Type: Spontaneous
  Country: CN (occurrence: CN)
  Receive Date: 20240423
  Receipt Date: 20240423
  Transmission Date: 20240716
  Serious: Yes (Other)
  Sender: FDA-Public Use
  Company Number: CN-BAYER-2024A060390

PATIENT
  Age: 61 Year
  Sex: Male
  Weight: 60 kg

DRUGS (2)
  1. KOVALTRY [Suspect]
     Active Substance: ANTIHEMOPHILIC FACTOR, HUMAN RECOMBINANT
     Indication: Hepatic cancer
     Dosage: 200 MG, QD, PUMPING
     Route: 050
     Dates: start: 20240411, end: 20240411
  2. SINTILIMAB [Concomitant]
     Active Substance: SINTILIMAB
     Indication: Immunomodulatory therapy
     Dosage: 200 MG
     Route: 041
     Dates: start: 20240411

REACTIONS (2)
  - Myelosuppression [Unknown]
  - Off label use [None]

NARRATIVE: CASE EVENT DATE: 20240411
